FAERS Safety Report 20481046 (Version 1)
Quarter: 2022Q1

REPORT INFORMATION
  Report Type: Spontaneous
  Country: US (occurrence: None)
  Receive Date: 20220216
  Receipt Date: 20220216
  Transmission Date: 20220423
  Serious: No
  Sender: FDA-Public Use
  Company Number: 2022A038341

PATIENT
  Age: 51 Year
  Sex: Female

DRUGS (1)
  1. SYMBICORT [Suspect]
     Active Substance: BUDESONIDE\FORMOTEROL FUMARATE DIHYDRATE
     Dosage: 160/4.5MCG, FOUR TIMES A DAY
     Route: 055
     Dates: start: 2011

REACTIONS (7)
  - Asthma [Unknown]
  - Dyspnoea [Unknown]
  - Chest discomfort [Unknown]
  - General physical health deterioration [Unknown]
  - Condition aggravated [Unknown]
  - Device malfunction [Unknown]
  - Product use issue [Unknown]

NARRATIVE: CASE EVENT DATE: 20110101
